FAERS Safety Report 8361376-6 (Version None)
Quarter: 2012Q2

REPORT INFORMATION
  Report Type: 
  Country: None (occurrence: None)
  Receive Date: 20120514
  Receipt Date: 20120418
  Transmission Date: 20120825
  Serious: Yes (Hospitalization, Other)
  Sender: FDA-Public Use
  Company Number: GB-025585

PATIENT
  Age: 62 Year
  Sex: Male

DRUGS (1)
  1. CHLORAMBUCIL (CHLORAMBUCIL) UNKNOWN) [Suspect]
     Indication: CHRONIC LYMPHOCYTIC LEUKAEMIA
     Dosage: (10 MG/M2) ORAL
     Route: 048
     Dates: start: 20110308

REACTIONS (3)
  - DIABETIC NEUROPATHY [None]
  - GRAND MAL CONVULSION [None]
  - LIVER FUNCTION TEST ABNORMAL [None]
